FAERS Safety Report 15998842 (Version 2)
Quarter: 2019Q2

REPORT INFORMATION
  Report Type: Spontaneous
  Country: US (occurrence: US)
  Receive Date: 20190223
  Receipt Date: 20190503
  Transmission Date: 20190711
  Serious: Yes (Hospitalization, Disabling, Other)
  Sender: FDA-Public Use
  Company Number: US-009507513-1902USA007715

PATIENT
  Sex: Female

DRUGS (2)
  1. SINEMET [Suspect]
     Active Substance: CARBIDOPA\LEVODOPA
     Dosage: UNK
     Route: 048
  2. CARBIDOPA (+) LEVODOPA [Suspect]
     Active Substance: CARBIDOPA\LEVODOPA

REACTIONS (15)
  - Bladder disorder [Unknown]
  - Dyspnoea [Unknown]
  - Product dose omission [Unknown]
  - Liver injury [Unknown]
  - Syncope [Unknown]
  - Insomnia [Recovered/Resolved]
  - Gait inability [Not Recovered/Not Resolved]
  - Hallucination [Not Recovered/Not Resolved]
  - Parkinson^s disease [Not Recovered/Not Resolved]
  - Adverse event [Unknown]
  - Tooth disorder [Unknown]
  - Product supply issue [Unknown]
  - Hypersomnia [Unknown]
  - Dyskinesia [Unknown]
  - Overdose [Unknown]
